FAERS Safety Report 9575240 (Version 2)
Quarter: 2014Q1

REPORT INFORMATION
  Report Type: Spontaneous
  Country: US (occurrence: US)
  Receive Date: 20131001
  Receipt Date: 20140227
  Transmission Date: 20141002
  Serious: Yes (Other)
  Sender: FDA-Public Use
  Company Number: US-GLAXOSMITHKLINE-A1043525A

PATIENT
  Age: 69 Year
  Sex: Female
  Weight: 76.3 kg

DRUGS (9)
  1. VOTRIENT [Suspect]
     Indication: RENAL CELL CARCINOMA
     Dosage: 400MG TWICE PER DAY
     Route: 065
     Dates: start: 20130913, end: 20130927
  2. AVAPRO [Concomitant]
  3. CARDIZEM [Concomitant]
  4. CITALOPRAM [Concomitant]
  5. GLIMEPIRIDE [Concomitant]
  6. HYDROCODONE/APAP [Concomitant]
  7. OXYCODONE [Concomitant]
  8. OXYBUTYNIN [Concomitant]
  9. ZOFRAN [Concomitant]

REACTIONS (4)
  - Cognitive disorder [Recovered/Resolved]
  - Nausea [Recovered/Resolved]
  - Vomiting [Recovered/Resolved]
  - Fatigue [Recovered/Resolved]
